FAERS Safety Report 8103556-0 (Version None)
Quarter: 2012Q1

REPORT INFORMATION
  Report Type: 
  Country: None (occurrence: None)
  Receive Date: 20120201
  Receipt Date: 20120125
  Transmission Date: 20120608
  Serious: Yes (Hospitalization)
  Sender: FDA-Public Use
  Company Number: JP-PFIZER INC-2011191135

PATIENT
  Age: 58 Year
  Sex: Male
  Weight: 56.2 kg

DRUGS (11)
  1. TEMSIROLIMUS [Suspect]
     Dosage: 25 MG WEEKLY
     Dates: start: 20110322, end: 20110426
  2. OXYCONTIN [Concomitant]
     Dosage: 5 MG, 2X/DAY
     Route: 048
     Dates: start: 20110412
  3. LASIX [Concomitant]
     Dosage: 20 MG, 1X/DAY
     Route: 048
     Dates: start: 20110412
  4. NOVAMIN [Concomitant]
     Dosage: 5 MG, 3X/DAY
     Route: 048
     Dates: start: 20110426
  5. MUCOSTA [Concomitant]
     Dosage: 100 MG, 3X/DAY
     Route: 048
     Dates: start: 20110418
  6. MAGNESIUM OXIDE [Concomitant]
     Dosage: 0.5 G, 3X/DAY
     Route: 048
     Dates: start: 20110417
  7. TEMSIROLIMUS [Suspect]
     Indication: RENAL CELL CARCINOMA
     Dosage: 25 MG WEEKLY
     Dates: start: 20110223, end: 20110309
  8. TEMSIROLIMUS [Suspect]
     Dosage: 25 MG
     Dates: start: 20110509, end: 20110509
  9. POLARAMINE [Concomitant]
     Indication: PROPHYLAXIS
     Dosage: 5 MG, PRN WITH TEMSIROLIMUS ADMINISTRATION
     Route: 042
     Dates: start: 20110223, end: 20110309
  10. LOXOPROFEN [Concomitant]
     Dosage: 60 MG, 3X/DAY
     Route: 048
     Dates: start: 20110418
  11. APHTASOLON [Concomitant]
     Dosage: UNK
     Route: 061
     Dates: start: 20110308

REACTIONS (1)
  - ASCITES [None]
